FAERS Safety Report 7299040-7 (Version None)
Quarter: 2010Q4

REPORT INFORMATION
  Report Type: 
  Country: None (occurrence: None)
  Receive Date: 20101223
  Receipt Date: 20100615
  Transmission Date: 20110411
  Serious: Yes (Other)
  Sender: FDA-Public Use
  Company Number: 238214USA

PATIENT
  Age: 29 Year
  Sex: Female

DRUGS (3)
  1. PARAGARD T 380A [Suspect]
     Indication: CONTRACEPTION
     Dosage: I.U.
     Dates: start: 20100608, end: 20100608
  2. LEVOTHYROXINE SODIUM [Concomitant]
  3. PRENATAL VITAMINS [Concomitant]

REACTIONS (3)
  - ABDOMINAL PAIN [None]
  - UTERINE PERFORATION [None]
  - VAGINAL HAEMORRHAGE [None]
